FAERS Safety Report 5962691-3 (Version None)
Quarter: 2008Q4

REPORT INFORMATION
  Report Type: 
  Country: None (occurrence: None)
  Receive Date: 20081124
  Receipt Date: 20081117
  Transmission Date: 20090506
  Serious: Yes (Other)
  Sender: FDA-Public Use
  Company Number: DE-JNJFOC-20081103577

PATIENT
  Age: 41 Year
  Sex: Female

DRUGS (15)
  1. HALDOL [Suspect]
     Indication: DRUG USE FOR UNKNOWN INDICATION
     Route: 048
  2. RISPERDAL [Suspect]
     Route: 048
  3. RISPERDAL [Suspect]
     Indication: DRUG USE FOR UNKNOWN INDICATION
     Route: 048
  4. PRONEURIN [Suspect]
     Route: 048
  5. PRONEURIN [Suspect]
     Route: 048
  6. PRONEURIN [Suspect]
     Route: 048
  7. PRONEURIN [Suspect]
     Route: 048
  8. PRONEURIN [Suspect]
     Route: 048
  9. PRONEURIN [Suspect]
     Route: 048
  10. PRONEURIN [Suspect]
     Indication: DRUG USE FOR UNKNOWN INDICATION
     Route: 048
  11. TIAPRIDEX [Suspect]
     Route: 048
  12. TIAPRIDEX [Suspect]
     Route: 048
  13. TIAPRIDEX [Suspect]
     Route: 048
  14. TIAPRIDEX [Suspect]
     Route: 048
  15. TIAPRIDEX [Suspect]
     Indication: DRUG USE FOR UNKNOWN INDICATION
     Route: 048

REACTIONS (1)
  - PLEUROTHOTONUS [None]
